FAERS Safety Report 8887209 (Version 4)
Quarter: 2012Q4

REPORT INFORMATION
  Report Type: Report from Study
  Country: TW (occurrence: TW)
  Receive Date: 20121105
  Receipt Date: 20121226
  Transmission Date: 20130627
  Serious: Yes (Hospitalization)
  Sender: FDA-Public Use
  Company Number: TW-ROCHE-1151558

PATIENT
  Age: 73 Year
  Sex: Female

DRUGS (2)
  1. PEGINTERFERON ALFA-2B [Suspect]
     Indication: CHRONIC HEPATITIS C
     Route: 058
     Dates: start: 20121001, end: 20121015
  2. RIBAVIRIN [Suspect]
     Indication: CHRONIC HEPATITIS C
     Route: 048
     Dates: start: 20121001, end: 20121024

REACTIONS (2)
  - Vertigo [Recovered/Resolved]
  - Cardiac myxoma [Recovered/Resolved]
